FAERS Safety Report 5835015-X (Version None)
Quarter: 2008Q3

REPORT INFORMATION
  Report Type: 
  Country: None (occurrence: None)
  Receive Date: 20080801
  Receipt Date: 20080716
  Transmission Date: 20090109
  Serious: Yes (Other)
  Sender: FDA-Public Use
  Company Number: 6044353

PATIENT

DRUGS (4)
  1. BISOPROLOL FUMARATE [Suspect]
     Indication: DRUG USE FOR UNKNOWN INDICATION
     Dosage: INTRA-AMNIOTIC
     Route: 012
  2. WARFARIN SODIUM [Concomitant]
  3. ATENOLOL [Concomitant]
  4. DALTEPARIN (DALTEPARIN SODIUM) [Concomitant]

REACTIONS (11)
  - ACUTE LEFT VENTRICULAR FAILURE [None]
  - AORTIC VALVE DISEASE [None]
  - CAESAREAN SECTION [None]
  - CIRCULATORY COLLAPSE [None]
  - DANDY-WALKER SYNDROME [None]
  - FALL [None]
  - LOSS OF CONSCIOUSNESS [None]
  - MATERNAL DRUGS AFFECTING FOETUS [None]
  - REFUSAL OF TREATMENT BY PATIENT [None]
  - THROMBOSIS [None]
  - TREATMENT NONCOMPLIANCE [None]
